FAERS Safety Report 4417396-7 (Version None)
Quarter: 2004Q3

REPORT INFORMATION
  Report Type: 
  Country: None (occurrence: None)
  Receive Date: 20040803
  Receipt Date: 20040722
  Transmission Date: 20050211
  Serious: Yes (Other)
  Sender: FDA-Public Use
  Company Number: 2004225060US

PATIENT
  Age: 29 Year
  Sex: Female
  Weight: 52.2 kg

DRUGS (3)
  1. DEPO-PROVERA [Suspect]
     Dosage: 150 MG, 1ST INJECTION; SEE IMAGE
     Dates: start: 20040101, end: 20040101
  2. DEPO-PROVERA [Suspect]
     Dosage: 150 MG, 1ST INJECTION; SEE IMAGE
     Dates: start: 20040721, end: 20040721
  3. ALBUTEROL [Concomitant]

REACTIONS (2)
  - ARTHRALGIA [None]
  - ERYTHEMA [None]
